FAERS Safety Report 6821307-4 (Version None)
Quarter: 2010Q3

REPORT INFORMATION
  Report Type: 
  Country: None (occurrence: None)
  Receive Date: 20100707
  Receipt Date: 20080716
  Transmission Date: 20110219
  Serious: No
  Sender: FDA-Public Use
  Company Number: US-PFIZER INC-2008047022

PATIENT
  Sex: Male
  Weight: 102.97 kg

DRUGS (4)
  1. ZOLOFT [Suspect]
     Indication: DEPRESSION
     Route: 048
     Dates: start: 20080327
  2. ALCOHOL [Interacting]
  3. PERCOCET [Interacting]
     Indication: PAIN
  4. PRILOSEC [Concomitant]

REACTIONS (2)
  - DRUG INTERACTION [None]
  - ENURESIS [None]
